FAERS Safety Report 11890066 (Version 3)
Quarter: 2016Q1

REPORT INFORMATION
  Report Type: Spontaneous
  Country: US (occurrence: US)
  Receive Date: 20160105
  Receipt Date: 20160317
  Transmission Date: 20160526
  Serious: Yes (Hospitalization, Other)
  Sender: FDA-Public Use
  Company Number: US-DYAX CORP.-2015DX000289

PATIENT
  Age: 36 Year
  Sex: Female

DRUGS (4)
  1. UNSPECIFIED HEART MEDICATION [Concomitant]
     Active Substance: UNSPECIFIED INGREDIENT
     Indication: PRODUCT USED FOR UNKNOWN INDICATION
     Route: 065
  2. KALBITOR [Suspect]
     Active Substance: ECALLANTIDE
     Indication: HEREDITARY ANGIOEDEMA
     Route: 065
     Dates: start: 201512, end: 201512
  3. BERINERT [Concomitant]
     Active Substance: HUMAN C1-ESTERASE INHIBITOR
     Indication: PRODUCT USED FOR UNKNOWN INDICATION
     Route: 065
  4. KALBITOR [Suspect]
     Active Substance: ECALLANTIDE
     Route: 058

REACTIONS (14)
  - Cerebrovascular accident [Unknown]
  - Cardiac disorder [Unknown]
  - Caesarean section [Recovered/Resolved]
  - Splenomegaly [Unknown]
  - Myocardial infarction [Unknown]
  - Abdominal discomfort [Unknown]
  - Pregnancy [Recovered/Resolved]
  - Localised intraabdominal fluid collection [Unknown]
  - Chest pain [Unknown]
  - Pulmonary embolism [Unknown]
  - Peripheral swelling [Recovered/Resolved]
  - Vomiting [Unknown]
  - Hepatomegaly [Unknown]
  - Abdominal pain upper [Unknown]

NARRATIVE: CASE EVENT DATE: 201512
